FAERS Safety Report 12816543 (Version 1)
Quarter: 2016Q4

REPORT INFORMATION
  Report Type: Spontaneous
  Country: US (occurrence: US)
  Receive Date: 20161005
  Receipt Date: 20161005
  Transmission Date: 20170207
  Serious: No
  Sender: FDA-Public Use
  Company Number: US-AMGEN-USASP2015104593

PATIENT
  Age: 63 Year
  Sex: Female

DRUGS (2)
  1. PROLIA [Suspect]
     Active Substance: DENOSUMAB
     Indication: OSTEOPOROSIS
     Dosage: UNK
     Route: 065
  2. SYNTHROID [Concomitant]
     Active Substance: LEVOTHYROXINE SODIUM
     Dosage: UNK

REACTIONS (7)
  - Skin swelling [Unknown]
  - Gout [Unknown]
  - Alopecia [Unknown]
  - Pruritus [Unknown]
  - Drug level fluctuating [Unknown]
  - Onychomadesis [Unknown]
  - Palpitations [Unknown]

NARRATIVE: CASE EVENT DATE: 2015
